FAERS Safety Report 17547739 (Version 4)
Quarter: 2020Q2

REPORT INFORMATION
  Report Type: Spontaneous
  Country: JP (occurrence: JP)
  Receive Date: 20200316
  Receipt Date: 20200614
  Transmission Date: 20200713
  Serious: Yes (Other)
  Sender: FDA-Public Use
  Company Number: JP-BRISTOL-MYERS SQUIBB COMPANY-BMS-2020-022808

PATIENT
  Age: 72 Year
  Sex: Female
  Weight: 44.6 kg

DRUGS (1)
  1. OPDIVO [Suspect]
     Active Substance: NIVOLUMAB
     Indication: GASTRIC CANCER
     Dosage: 240 MILLIGRAM, Q2WK
     Route: 041
     Dates: start: 20200226

REACTIONS (7)
  - Hepatic cyst [Unknown]
  - Cholelithiasis [Unknown]
  - Biliary dilatation [Unknown]
  - Ascites [Unknown]
  - Drug-induced liver injury [Unknown]
  - Bladder hypertrophy [Unknown]
  - Renal cyst [Unknown]

NARRATIVE: CASE EVENT DATE: 20200311
